FAERS Safety Report 8112172-6 (Version None)
Quarter: 2012Q1

REPORT INFORMATION
  Report Type: 
  Country: None (occurrence: None)
  Receive Date: 20120203
  Receipt Date: 20120124
  Transmission Date: 20120608
  Serious: Yes (Death, Life-Threatening, Hospitalization)
  Sender: FDA-Public Use
  Company Number: FR-PFIZER INC-2012000223

PATIENT
  Age: 50 Year
  Sex: Female
  Weight: 72 kg

DRUGS (5)
  1. LANSOPRAZOLE [Concomitant]
     Indication: ABDOMINAL PAIN UPPER
     Dosage: 30 MG/24 HOURS
     Route: 048
     Dates: start: 20110501
  2. ARIXTRA [Concomitant]
     Indication: ANTICOAGULANT THERAPY
     Dosage: 7.5 MG/24 HOURS
     Route: 048
     Dates: start: 20110101
  3. SUTENT [Suspect]
     Indication: METASTATIC GASTRIC CANCER
     Dosage: 37.5 MG/24 HOURS
     Route: 048
     Dates: start: 20111123, end: 20111231
  4. DURAGESIC-100 [Concomitant]
     Indication: PAIN
     Dosage: 25MG/24 HOURS
     Route: 048
     Dates: start: 20111220
  5. VOGALEN [Concomitant]
     Indication: NAUSEA
     Dosage: 15MG/24 HOURS
     Route: 048
     Dates: start: 20111129

REACTIONS (6)
  - CHEST PAIN [None]
  - MEDIASTINITIS [None]
  - DYSPNOEA [None]
  - FISTULA [None]
  - PLEURAL EFFUSION [None]
  - TACHYCARDIA [None]
